FAERS Safety Report 19058504 (Version 2)
Quarter: 2021Q2

REPORT INFORMATION
  Report Type: Spontaneous
  Country: US (occurrence: US)
  Receive Date: 20210325
  Receipt Date: 20210521
  Transmission Date: 20210717
  Serious: Yes (Hospitalization, Other)
  Sender: FDA-Public Use
  Company Number: US-SA-2021SA101481

PATIENT
  Sex: Female

DRUGS (3)
  1. DUPIXENT [Suspect]
     Active Substance: DUPILUMAB
     Indication: ASTHMA
  2. DUPIXENT [Suspect]
     Active Substance: DUPILUMAB
     Indication: CHRONIC RHINOSINUSITIS WITH NASAL POLYPS
     Dosage: 300 MG, QOW
     Route: 058
     Dates: start: 20200330
  3. DUPIXENT [Suspect]
     Active Substance: DUPILUMAB
     Indication: SINUSITIS

REACTIONS (12)
  - Urinary tract infection [Recovered/Resolved]
  - Anosmia [Recovered/Resolved]
  - Taste disorder [Unknown]
  - Parosmia [Unknown]
  - Loss of consciousness [Recovered/Resolved]
  - Hospitalisation [Unknown]
  - Dizziness [Unknown]
  - Ageusia [Recovered/Resolved]
  - Hypophagia [Unknown]
  - Product use in unapproved indication [Unknown]
  - Dehydration [Recovered/Resolved]
  - Stress [Unknown]
